FAERS Safety Report 14331760 (Version 3)
Quarter: 2021Q1

REPORT INFORMATION
  Report Type: Report from Study
  Country: BR (occurrence: BR)
  Receive Date: 20171228
  Receipt Date: 20210311
  Transmission Date: 20210419
  Serious: Yes (Hospitalization, Other)
  Sender: FDA-Public Use
  Company Number: PHHY2017BR165774

PATIENT
  Age: 33 Year
  Sex: Male
  Weight: 80 kg

DRUGS (18)
  1. COSENTYX [Suspect]
     Active Substance: SECUKINUMAB
     Dosage: 300 MG, QMO
     Route: 058
     Dates: start: 20190226
  2. COSENTYX [Suspect]
     Active Substance: SECUKINUMAB
     Dosage: UNK
     Route: 065
     Dates: start: 20210205
  3. FOLIC ACID. [Concomitant]
     Active Substance: FOLIC ACID
     Indication: PSORIATIC ARTHROPATHY
  4. COSENTYX [Suspect]
     Active Substance: SECUKINUMAB
     Indication: ANKYLOSING SPONDYLITIS
     Dosage: 300 MG (2 AMPOULES OF 150 MG), QMO
     Route: 058
     Dates: start: 201710
  5. COSENTYX [Suspect]
     Active Substance: SECUKINUMAB
     Dosage: UNK
     Route: 065
     Dates: start: 20200208
  6. PROFENID [Concomitant]
     Active Substance: KETOPROFEN
     Indication: PRODUCT USED FOR UNKNOWN INDICATION
     Dosage: UNK
     Route: 065
  7. COSENTYX [Suspect]
     Active Substance: SECUKINUMAB
     Indication: PSORIATIC ARTHROPATHY
     Dosage: 300 MG, QMO
     Route: 058
     Dates: start: 201709
  8. COSENTYX [Suspect]
     Active Substance: SECUKINUMAB
     Dosage: 300 MG, QMO
     Route: 058
     Dates: start: 20180521
  9. DIPYRON [Concomitant]
     Indication: ANKYLOSING SPONDYLITIS
     Dosage: 1 G, QD (SINCE 12 YEARS OLD)
     Route: 048
  10. DIPYRON [Concomitant]
     Indication: PSORIATIC ARTHROPATHY
  11. METHOTREXATE. [Concomitant]
     Active Substance: METHOTREXATE
     Indication: ANKYLOSING SPONDYLITIS
     Dosage: 10 DF, QW (SINCE 12 YEARS OLD)
     Route: 048
  12. METHOTREXATE. [Concomitant]
     Active Substance: METHOTREXATE
     Indication: PSORIATIC ARTHROPATHY
  13. CALCIUM [Concomitant]
     Active Substance: CALCIUM
     Indication: SUPPLEMENTATION THERAPY
     Dosage: 500 MG, QD
     Route: 065
  14. PREDNISONE. [Concomitant]
     Active Substance: PREDNISONE
     Indication: PSORIATIC ARTHROPATHY
  15. COSENTYX [Suspect]
     Active Substance: SECUKINUMAB
     Indication: POLYARTHRITIS
     Dosage: 300 MG, QMO
     Route: 058
     Dates: start: 20180221
  16. COSENTYX [Suspect]
     Active Substance: SECUKINUMAB
     Dosage: 300 MG, QMO
     Route: 058
     Dates: start: 20180421
  17. FOLIC ACID. [Concomitant]
     Active Substance: FOLIC ACID
     Indication: ANKYLOSING SPONDYLITIS
     Dosage: 30 MG, QW (1 DAY AFTER USING METHOTREXATE) (SINCE 12 YEARS OLD)
     Route: 048
  18. PREDNISONE. [Concomitant]
     Active Substance: PREDNISONE
     Indication: ANKYLOSING SPONDYLITIS
     Dosage: 5 MG, QD
     Route: 048

REACTIONS (37)
  - Pruritus [Recovering/Resolving]
  - Arthritis [Recovering/Resolving]
  - Product use in unapproved indication [Unknown]
  - Influenza [Not Recovered/Not Resolved]
  - Movement disorder [Recovering/Resolving]
  - Pain [Recovering/Resolving]
  - Arthropathy [Recovering/Resolving]
  - Panic attack [Unknown]
  - Pain [Recovered/Resolved]
  - Gait inability [Unknown]
  - Swelling [Recovering/Resolving]
  - Pharyngeal inflammation [Recovered/Resolved]
  - Illness [Recovering/Resolving]
  - Discomfort [Recovering/Resolving]
  - Nail discolouration [Not Recovered/Not Resolved]
  - Product availability issue [Unknown]
  - Bone disorder [Unknown]
  - Constipation [Recovering/Resolving]
  - Psoriasis [Recovering/Resolving]
  - Wound [Recovered/Resolved]
  - Pyrexia [Recovering/Resolving]
  - Nail disorder [Recovering/Resolving]
  - Back pain [Recovering/Resolving]
  - Inflammation [Recovering/Resolving]
  - Anxiety [Unknown]
  - Autoimmune disorder [Not Recovered/Not Resolved]
  - Weight increased [Recovering/Resolving]
  - Weight decreased [Unknown]
  - Arthralgia [Recovering/Resolving]
  - Asthenia [Unknown]
  - Ankylosing spondylitis [Unknown]
  - Scab [Recovering/Resolving]
  - Muscular weakness [Recovering/Resolving]
  - Skin haemorrhage [Recovering/Resolving]
  - Nail psoriasis [Not Recovered/Not Resolved]
  - Nail disorder [Not Recovered/Not Resolved]
  - Fear [Unknown]

NARRATIVE: CASE EVENT DATE: 20180423
